FAERS Safety Report 18139152 (Version 2)
Quarter: 2020Q3

REPORT INFORMATION
  Report Type: Spontaneous
  Country: CO (occurrence: CO)
  Receive Date: 20200812
  Receipt Date: 20200821
  Transmission Date: 20201103
  Serious: Yes (Death, Life-Threatening, Hospitalization, Other)
  Sender: FDA-Public Use
  Company Number: CO-PFIZER INC-2020309128

PATIENT
  Age: 18 Year
  Sex: Female

DRUGS (1)
  1. AMLODIPINE BESILATE [Suspect]
     Active Substance: AMLODIPINE BESYLATE
     Indication: SUICIDE ATTEMPT
     Dosage: 600 MG (60 10MG AMLODIPINE TABLETS)
     Route: 048

REACTIONS (7)
  - Toxicity to various agents [Fatal]
  - Hyperlactacidaemia [Fatal]
  - Blood pressure decreased [Fatal]
  - Renal impairment [Fatal]
  - Intentional overdose [Fatal]
  - Hypoperfusion [Fatal]
  - Tachycardia [Fatal]
